FAERS Safety Report 7383734-9 (Version None)
Quarter: 2011Q1

REPORT INFORMATION
  Report Type: 
  Country: None (occurrence: None)
  Receive Date: 20110330
  Receipt Date: 20110328
  Transmission Date: 20110831
  Serious: Yes (Death, Life-Threatening)
  Sender: FDA-Public Use
  Company Number: JP-PFIZER INC-2011068821

PATIENT
  Age: 15 Year
  Sex: Male
  Weight: 31 kg

DRUGS (20)
  1. LASIX [Concomitant]
     Indication: CARDIAC FAILURE
     Dosage: UNK
     Route: 048
  2. RENIVACE [Concomitant]
     Indication: CARDIAC FAILURE
     Dosage: UNK
     Route: 048
  3. DIGOSIN [Concomitant]
     Indication: CARDIAC FAILURE
     Dosage: UNK
  4. PIMOBENDAN [Concomitant]
     Indication: CARDIAC FAILURE
     Dosage: UNK
  5. LAXOBERON [Concomitant]
     Indication: CONSTIPATION
     Dosage: UNK
     Route: 048
  6. SILDENAFIL CITRATE [Suspect]
     Dosage: 5 MG/DAY
     Route: 048
     Dates: start: 20080513, end: 20080515
  7. TRACLEER [Concomitant]
     Indication: PULMONARY HYPERTENSION
     Dosage: UNK
  8. SILDENAFIL CITRATE [Suspect]
     Dosage: 10 MG/DAY
     Route: 048
     Dates: start: 20080516, end: 20080519
  9. SILDENAFIL CITRATE [Suspect]
     Dosage: 30 MG/DAY
     Route: 048
     Dates: start: 20080602, end: 20080609
  10. SILDENAFIL CITRATE [Suspect]
     Dosage: 35 MG/DAY
     Route: 048
     Dates: start: 20080610, end: 20080617
  11. GASTER [Concomitant]
     Indication: GASTRIC ULCER
     Dosage: UNK
  12. MAGNESIUM OXIDE [Concomitant]
     Indication: CONSTIPATION
     Dosage: UNK
     Route: 048
  13. LASIX [Concomitant]
     Route: 042
  14. FLUITRAN [Concomitant]
     Indication: CARDIAC FAILURE
     Dosage: UNK
     Route: 048
  15. SOLDACTONE [Concomitant]
     Indication: PRODUCT USED FOR UNKNOWN INDICATION
     Dosage: UNK
     Route: 042
  16. SILDENAFIL CITRATE [Suspect]
     Dosage: 15 MG/DAY
     Route: 048
     Dates: start: 20080520, end: 20080522
  17. SILDENAFIL CITRATE [Suspect]
     Dosage: 20 MG/DAY
     Route: 048
     Dates: start: 20080523, end: 20080601
  18. SILDENAFIL CITRATE [Suspect]
     Dosage: 40 MG/DAY
     Route: 048
     Dates: start: 20080618
  19. ALDACTONE [Concomitant]
     Indication: CARDIAC FAILURE
     Dosage: UNK
  20. FESIN [Concomitant]
     Indication: ANAEMIA
     Dosage: UNK
     Route: 042

REACTIONS (1)
  - PULMONARY HYPERTENSION [None]
